FAERS Safety Report 5892319-2 (Version None)
Quarter: 2008Q3

REPORT INFORMATION
  Report Type: 
  Country: None (occurrence: None)
  Receive Date: 20080922
  Receipt Date: 20080911
  Transmission Date: 20090109
  Serious: Yes (Other)
  Sender: FDA-Public Use
  Company Number: US-JNJCH-2008023969

PATIENT
  Age: 13 Month
  Sex: Male
  Weight: 10 kg

DRUGS (1)
  1. CHILDREN'S PEDIACARE LONG ACTING COUGH [Suspect]
     Indication: COUGH
     Dosage: TEXT:1 TEASPOON TWICE
     Route: 048
     Dates: start: 20080910, end: 20080910

REACTIONS (2)
  - CONVULSION [None]
  - WRONG DRUG ADMINISTERED [None]
